FAERS Safety Report 14820100 (Version 4)
Quarter: 2018Q2

REPORT INFORMATION
  Report Type: Spontaneous
  Country: CO (occurrence: CO)
  Receive Date: 20180427
  Receipt Date: 20180615
  Transmission Date: 20180711
  Serious: Yes (Death, Other)
  Sender: FDA-Public Use
  Company Number: CO-AMGEN-COLSP2018056252

PATIENT
  Age: 20 Year
  Sex: Male
  Weight: 60 kg

DRUGS (15)
  1. DEXAMETHASONE. [Concomitant]
     Active Substance: DEXAMETHASONE
     Indication: PROPHYLAXIS
     Dosage: 40 MG, Q8H
     Route: 042
     Dates: start: 20170411
  2. DAUNORUBICINE [Concomitant]
     Active Substance: DAUNORUBICIN
     Dosage: 45 MG/M2, UNK
     Dates: start: 20170625
  3. BLINCYTO [Suspect]
     Active Substance: BLINATUMOMAB
     Indication: B PRECURSOR TYPE ACUTE LEUKAEMIA
     Dosage: 9 MUG, QD
     Route: 042
     Dates: start: 20170414, end: 201704
  4. ACYCLOVIR. [Concomitant]
     Active Substance: ACYCLOVIR
     Indication: PROPHYLAXIS
     Dosage: 200 MG, QD
     Route: 048
  5. LEVOFLOXACIN. [Concomitant]
     Active Substance: LEVOFLOXACIN
     Indication: PROPHYLAXIS
     Dosage: 500 MG, QD
     Route: 048
  6. BLINCYTO [Suspect]
     Active Substance: BLINATUMOMAB
     Dosage: 28 MUG, QD
     Route: 042
     Dates: start: 201704
  7. FILGRASTIM [Suspect]
     Active Substance: FILGRASTIM
     Indication: PRODUCT USED FOR UNKNOWN INDICATION
     Dosage: 300 MUG, QD
     Route: 058
     Dates: start: 20170628
  8. CYTARABINE. [Concomitant]
     Active Substance: CYTARABINE
     Dosage: 40 MG, 2 TIMES/WK
     Dates: start: 20170412
  9. FLUCONAZOLE. [Concomitant]
     Active Substance: FLUCONAZOLE
     Indication: PROPHYLAXIS
     Dosage: 200 MG, QD
     Route: 048
  10. LEVETIRACETAM. [Concomitant]
     Active Substance: LEVETIRACETAM
     Indication: PROPHYLAXIS
     Dosage: 500 MG, Q12H
     Route: 048
  11. L-ASPARAGINASE [Concomitant]
     Active Substance: ASPARAGINASE
     Dosage: 6000 UI/M2 (DAY 5, 8,11 AND 15)
     Dates: start: 20170629
  12. METHOTREXATE. [Concomitant]
     Active Substance: METHOTREXATE
     Dosage: 15 MG, 2 TIMES/WK
     Dates: start: 20170412
  13. VINCRISTINE [Concomitant]
     Active Substance: VINCRISTINE
     Dosage: 2 MG, (DAY 1,8 AND 15) UNK
     Dates: start: 20170625
  14. PREDNISONE. [Concomitant]
     Active Substance: PREDNISONE
     Dosage: 60 MG/M2, (DAY 1 AND 15)
     Dates: start: 20170625, end: 20170709
  15. CYCLOPHOSPHAMIDE. [Concomitant]
     Active Substance: CYCLOPHOSPHAMIDE
     Dosage: 1200 MG/M2, UNK
     Dates: start: 20170625

REACTIONS (6)
  - Febrile neutropenia [Unknown]
  - Acute lymphocytic leukaemia recurrent [Fatal]
  - Bacillus bacteraemia [Unknown]
  - Cytokine release syndrome [Unknown]
  - Cerebral haemorrhage [Unknown]
  - Gastrointestinal disorder [Unknown]

NARRATIVE: CASE EVENT DATE: 20170417
